FAERS Safety Report 10965907 (Version 2)
Quarter: 2015Q2

REPORT INFORMATION
  Report Type: Spontaneous
  Country: US (occurrence: US)
  Receive Date: 20150330
  Receipt Date: 20150404
  Transmission Date: 20150821
  Serious: No
  Sender: FDA-Public Use
  Company Number: US-009507513-1503USA010903

PATIENT
  Sex: Female

DRUGS (1)
  1. NEXPLANON [Suspect]
     Active Substance: ETONOGESTREL
     Indication: CONTRACEPTION
     Dosage: 1 ROD/3 YEARS
     Route: 059
     Dates: start: 201409, end: 20150330

REACTIONS (3)
  - Device expulsion [Recovered/Resolved]
  - Injection site infection [Unknown]
  - Implant site cellulitis [Recovering/Resolving]

NARRATIVE: CASE EVENT DATE: 2014
